FAERS Safety Report 15428772 (Version 1)
Quarter: 2018Q3

REPORT INFORMATION
  Report Type: Spontaneous
  Country: FR (occurrence: FR)
  Receive Date: 20180926
  Receipt Date: 20180926
  Transmission Date: 20181010
  Serious: Yes (Life-Threatening, Other)
  Sender: FDA-Public Use
  Company Number: FR-ACCORD-072134

PATIENT
  Age: 50 Year
  Sex: Female

DRUGS (2)
  1. MYCOPHENOLIC ACID. [Suspect]
     Active Substance: MYCOPHENOLIC ACID
     Indication: IMMUNOSUPPRESSION
  2. TACROLIMUS. [Suspect]
     Active Substance: TACROLIMUS
     Indication: IMMUNOSUPPRESSION

REACTIONS (2)
  - Hepatic echinococciasis [Recovered/Resolved]
  - Pulmonary granuloma [Recovered/Resolved]

NARRATIVE: CASE EVENT DATE: 201306
